FAERS Safety Report 6070489-3 (Version None)
Quarter: 2009Q1

REPORT INFORMATION
  Report Type: 
  Country: None (occurrence: None)
  Receive Date: 20090209
  Receipt Date: 20090203
  Transmission Date: 20090719
  Serious: Yes (Hospitalization)
  Sender: FDA-Public Use
  Company Number: US-MERCK-0902USA00469

PATIENT
  Sex: Male

DRUGS (2)
  1. ZOLINZA [Suspect]
     Route: 048
  2. NEXAVAR [Concomitant]
     Route: 065

REACTIONS (1)
  - PANCYTOPENIA [None]
